FAERS Safety Report 6767662-5 (Version None)
Quarter: 2010Q2

REPORT INFORMATION
  Report Type: 
  Country: None (occurrence: None)
  Receive Date: 20100614
  Receipt Date: 20100601
  Transmission Date: 20101027
  Serious: Yes (Hospitalization)
  Sender: FDA-Public Use
  Company Number: US-ELI_LILLY_AND_COMPANY-US201006002146

PATIENT
  Sex: Female

DRUGS (9)
  1. FORTEO [Suspect]
     Indication: OSTEOPOROSIS
     Dosage: 20 UG, DAILY (1/D)
     Dates: start: 20090901
  2. COUMADIN [Concomitant]
     Dosage: UNK, DAILY (1/D)
  3. CRESTOR [Concomitant]
     Dosage: UNK, DAILY (1/D)
  4. TOPROL-XL [Concomitant]
     Dosage: UNK, DAILY (1/D)
  5. MULTIVITAMIN [Concomitant]
     Dosage: UNK, DAILY (1/D)
  6. CO-Q10 [Concomitant]
     Dosage: UNK, DAILY (1/D)
  7. VITAMIN TAB [Concomitant]
     Dosage: UNK, DAILY (1/D)
  8. CALCIUM CARBONATE [Concomitant]
     Dosage: UNK, DAILY (1/D)
  9. PERCOCET [Concomitant]
     Dosage: UNK, AS NEEDED

REACTIONS (2)
  - BLISTER [None]
  - KNEE ARTHROPLASTY [None]
